FAERS Safety Report 6021553-6 (Version None)
Quarter: 2008Q4

REPORT INFORMATION
  Report Type: 
  Country: None (occurrence: None)
  Receive Date: 20081229
  Receipt Date: 20081217
  Transmission Date: 20090506
  Serious: Yes (Other)
  Sender: FDA-Public Use
  Company Number: PHHY2008JP32587

PATIENT
  Age: 60 Year
  Sex: Female

DRUGS (5)
  1. DIOVAN [Suspect]
     Indication: HYPERTENSION
     Dosage: 160 MG, QD
     Route: 048
     Dates: start: 20081114, end: 20081204
  2. DIOVAN [Suspect]
     Dosage: 80 MG, QD
     Route: 048
     Dates: start: 20081205
  3. MAINTATE [Concomitant]
     Dosage: 2.5 MG
     Route: 048
  4. ACINON [Concomitant]
     Dosage: 300 MG
     Route: 048
  5. PROMAC                                  /JPN/ [Concomitant]
     Dosage: 150 MG
     Route: 048

REACTIONS (2)
  - HUNGER [None]
  - URINARY RETENTION [None]
